FAERS Safety Report 23845873 (Version 1)
Quarter: 2024Q2

REPORT INFORMATION
  Report Type: Spontaneous
  Country: US (occurrence: US)
  Receive Date: 20240512
  Receipt Date: 20240512
  Transmission Date: 20240716
  Serious: No
  Sender: FDA-Public Use
  Company Number: US-CIPLA LTD.-2023US07214

PATIENT

DRUGS (14)
  1. ALBUTEROL [Suspect]
     Active Substance: ALBUTEROL
     Indication: Bronchitis
     Dosage: 2 PUFFS, EVERY 4 HOURS FOR UP TO 14 DAYS
     Dates: start: 20231107
  2. PREDNISONE [Concomitant]
     Active Substance: PREDNISONE
     Indication: Bronchitis
     Dosage: 4 MG, PATIENT WAS PRESCRIBED THIS MEDICATION FOR 6 DAYS AND WAS DIRECTED TO TAKE 6 TABLETS ON 1ST DA
     Route: 065
     Dates: start: 20231107
  3. AMLODIPINE [Concomitant]
     Active Substance: AMLODIPINE BESYLATE
     Indication: Blood pressure measurement
     Dosage: 2.5 MG/1 TABLET DAILY
     Route: 065
     Dates: start: 2017
  4. AMLODIPINE [Concomitant]
     Active Substance: AMLODIPINE BESYLATE
     Indication: Atrial fibrillation
  5. ATORVASTATIN [Concomitant]
     Active Substance: ATORVASTATIN
     Indication: Blood pressure measurement
     Dosage: 10 MG/1 TABLET DAILY
     Route: 065
     Dates: start: 2017
  6. ATORVASTATIN [Concomitant]
     Active Substance: ATORVASTATIN
     Indication: Atrial fibrillation
  7. FUROSEMIDE [Concomitant]
     Active Substance: FUROSEMIDE
     Indication: Blood pressure measurement
     Dosage: 20 MG/2 TABLETS DAILY
     Route: 065
     Dates: start: 2017
  8. FUROSEMIDE [Concomitant]
     Active Substance: FUROSEMIDE
     Indication: Atrial fibrillation
  9. LOSARTAN [Concomitant]
     Active Substance: LOSARTAN
     Indication: Blood pressure measurement
     Dosage: 50 MG/1 TABLET DAILY
     Route: 065
     Dates: start: 2017
  10. LOSARTAN [Concomitant]
     Active Substance: LOSARTAN
     Indication: Atrial fibrillation
  11. METOPROLOL [Concomitant]
     Active Substance: METOPROLOL
     Indication: Blood pressure measurement
     Dosage: 25 MG/1 TABLET DAILY
     Route: 065
     Dates: start: 2017
  12. METOPROLOL [Concomitant]
     Active Substance: METOPROLOL
     Indication: Atrial fibrillation
  13. SOTALOL [Concomitant]
     Active Substance: SOTALOL
     Indication: Blood pressure measurement
     Dosage: 60 MG/2 TABLETS DAILY
     Route: 065
     Dates: start: 2017
  14. SOTALOL [Concomitant]
     Active Substance: SOTALOL
     Indication: Atrial fibrillation

REACTIONS (5)
  - Accidental overdose [Unknown]
  - Accidental exposure to product [Unknown]
  - Device delivery system issue [Unknown]
  - Product taste abnormal [Unknown]
  - Product delivery mechanism issue [Unknown]

NARRATIVE: CASE EVENT DATE: 20231108
